FAERS Safety Report 19421825 (Version 1)
Quarter: 2021Q2

REPORT INFORMATION
  Report Type: Spontaneous
  Country: JP (occurrence: JP)
  Receive Date: 20210615
  Receipt Date: 20210615
  Transmission Date: 20210717
  Serious: Yes (Other)
  Sender: FDA-Public Use
  Company Number: NVSJ2021JP008637

PATIENT

DRUGS (1)
  1. AFINITOR [Suspect]
     Active Substance: EVEROLIMUS
     Indication: NEUROENDOCRINE TUMOUR
     Dosage: UNK
     Route: 048

REACTIONS (4)
  - Fracture [Unknown]
  - Malignant neoplasm progression [Unknown]
  - Metastases to bone [Unknown]
  - Metastases to liver [Unknown]
